FAERS Safety Report 10530221 (Version 1)
Quarter: 2014Q4

REPORT INFORMATION
  Report Type: Spontaneous
  Country: MY (occurrence: MY)
  Receive Date: 20141021
  Receipt Date: 20141021
  Transmission Date: 20150528
  Serious: Yes (Other)
  Sender: FDA-Public Use
  Company Number: MY-PFIZER INC-2014286799

PATIENT
  Age: 87 Year
  Sex: Female

DRUGS (5)
  1. CEFUROXIME. [Concomitant]
     Active Substance: CEFUROXIME
     Dosage: UNK
  2. CALCITRIOL. [Concomitant]
     Active Substance: CALCITRIOL
     Dosage: UNK
  3. CELEBREX [Suspect]
     Active Substance: CELECOXIB
     Indication: PAIN
     Dosage: 800 MG, DAILY
     Route: 048
  4. AMLODIPINE [Concomitant]
     Active Substance: AMLODIPINE BESYLATE
     Dosage: UNK
  5. CALCIUM LACTATE [Concomitant]
     Active Substance: CALCIUM LACTATE
     Dosage: UNK

REACTIONS (1)
  - Inappropriate antidiuretic hormone secretion [Not Recovered/Not Resolved]

NARRATIVE: CASE EVENT DATE: 20130627
